FAERS Safety Report 6259575-2 (Version None)
Quarter: 2009Q3

REPORT INFORMATION
  Report Type: 
  Country: None (occurrence: None)
  Receive Date: 20090708
  Receipt Date: 20090707
  Transmission Date: 20100115
  Serious: Yes (Life-Threatening, Hospitalization, Other)
  Sender: FDA-Public Use
  Company Number: US-PFIZER INC-2008157451

PATIENT
  Sex: Female
  Weight: 83.447 kg

DRUGS (16)
  1. GEODON [Suspect]
     Indication: AFFECTIVE DISORDER
     Dosage: 60 MG, 2X/DAY
     Route: 048
     Dates: start: 20080301, end: 20081101
  2. METHADONE HYDROCHLORIDE [Suspect]
  3. ASPIRIN [Concomitant]
  4. MULTI-VITAMINS [Concomitant]
  5. PROTONIX [Concomitant]
  6. PAXIL [Concomitant]
  7. PYRIDOSTIGMINE [Concomitant]
  8. SYNTHROID [Concomitant]
  9. VISTARIL [Concomitant]
  10. VITAMIN D [Concomitant]
  11. AMBIEN [Concomitant]
  12. FENTANYL [Concomitant]
  13. TRAZODONE [Concomitant]
  14. FEMHRT [Concomitant]
  15. ZOCOR [Concomitant]
  16. NORCO [Concomitant]

REACTIONS (6)
  - CARDIAC ARREST [None]
  - CARDIAC ENZYMES INCREASED [None]
  - DRUG INTERACTION [None]
  - ELECTROCARDIOGRAM QT PROLONGED [None]
  - ELECTROLYTE IMBALANCE [None]
  - TORSADE DE POINTES [None]
